FAERS Safety Report 4471818-4 (Version None)
Quarter: 2004Q4

REPORT INFORMATION
  Report Type: 
  Country: None (occurrence: None)
  Receive Date: 20041012
  Receipt Date: 20041001
  Transmission Date: 20050328
  Serious: Yes (Other)
  Sender: FDA-Public Use
  Company Number: US-MERCK-0410USA00235

PATIENT
  Age: 60 Year
  Sex: Female

DRUGS (5)
  1. ALLEGRA [Concomitant]
     Route: 065
  2. EVISTA [Concomitant]
     Route: 065
  3. VIOXX [Suspect]
     Indication: ARTHRITIS
     Route: 048
     Dates: start: 20030101
  4. CRESTOR [Concomitant]
     Route: 065
  5. ZOLOFT [Concomitant]
     Route: 065

REACTIONS (1)
  - CEREBROVASCULAR ACCIDENT [None]
